FAERS Safety Report 6757051-1 (Version None)
Quarter: 2010Q2

REPORT INFORMATION
  Report Type: 
  Country: None (occurrence: None)
  Receive Date: 20100604
  Receipt Date: 20100526
  Transmission Date: 20101027
  Serious: Yes (Death, Hospitalization, Other)
  Sender: FDA-Public Use
  Company Number: US-AMGEN-US326757

PATIENT
  Sex: Male
  Weight: 88.5 kg

DRUGS (4)
  1. PROCRIT [Suspect]
     Indication: ANAEMIA OF MALIGNANT DISEASE
     Route: 058
     Dates: start: 20080111, end: 20080111
  2. ARANESP [Suspect]
     Indication: ANAEMIA OF MALIGNANT DISEASE
     Dates: end: 20071101
  3. DEXAMETHASONE [Concomitant]
  4. MS CONTIN [Concomitant]

REACTIONS (6)
  - CONSTIPATION [None]
  - DEHYDRATION [None]
  - EPISTAXIS [None]
  - HAEMOGLOBIN DECREASED [None]
  - METASTASES TO CENTRAL NERVOUS SYSTEM [None]
  - MOUTH HAEMORRHAGE [None]
